FAERS Safety Report 8838154 (Version 1)
Quarter: 2012Q4

REPORT INFORMATION
  Report Type: 
  Country: US (occurrence: US)
  Receive Date: 20121012
  Receipt Date: 20121012
  Transmission Date: 20130627
  Serious: Yes (Other)
  Sender: FDA-Public Use
  Company Number: US-ROCHE-1139655

PATIENT
  Sex: Male

DRUGS (2)
  1. PROTROPIN [Suspect]
     Indication: HYPOPITUITARISM
     Route: 058
     Dates: start: 19951017
  2. CORTEF [Concomitant]
     Route: 065

REACTIONS (3)
  - Hypoglycaemia [Unknown]
  - Sleep apnoea syndrome [Unknown]
  - Convulsion [Unknown]
